FAERS Safety Report 24538456 (Version 1)
Quarter: 2024Q4

REPORT INFORMATION
  Report Type: Spontaneous
  Country: US (occurrence: None)
  Receive Date: 20241023
  Receipt Date: 20241023
  Transmission Date: 20250114
  Serious: No
  Sender: BANNER
  Company Number: US-PTA-005786

PATIENT
  Age: 61 Year
  Sex: Female

DRUGS (1)
  1. NAPROXEN [Suspect]
     Active Substance: NAPROXEN
     Indication: Pain
     Dosage: 4 DF, QD
     Route: 048

REACTIONS (2)
  - Incorrect dose administered [Unknown]
  - Product quality issue [Unknown]
